FAERS Safety Report 4783428-X (Version None)
Quarter: 2005Q3

REPORT INFORMATION
  Report Type: 
  Country: None (occurrence: None)
  Receive Date: 20050928
  Receipt Date: 20050912
  Transmission Date: 20060218
  Serious: Yes (Other)
  Sender: FDA-Public Use
  Company Number: US_0505117365

PATIENT
  Age: 45 Year
  Sex: Male
  Weight: 99 kg

DRUGS (13)
  1. ZYPREXA [Suspect]
     Indication: SCHIZOPHRENIA
     Dosage: 20 MG DAY
     Dates: start: 19980321
  2. FLUOXETINE HYDROCHLORIDE [Concomitant]
  3. TOPIRAMATE [Concomitant]
  4. SIMVASTATIN [Concomitant]
  5. GEMFIBROZIL [Concomitant]
  6. LISINOPRIL [Concomitant]
  7. LAMOTRIGINE [Concomitant]
  8. SERTRALINE HCL [Concomitant]
  9. DIVALPROEX (VALPROATE SEMISODIUM) [Concomitant]
  10. GABAPENTIN [Concomitant]
  11. PROPRANOLOL [Concomitant]
  12. AMLODIPINE [Concomitant]
  13. HALDOL [Concomitant]

REACTIONS (4)
  - DEHYDRATION [None]
  - DIABETES MELLITUS NON-INSULIN-DEPENDENT [None]
  - HYPOTENSION [None]
  - LOSS OF CONSCIOUSNESS [None]
